FAERS Safety Report 13404244 (Version 1)
Quarter: 2017Q2

REPORT INFORMATION
  Report Type: Report from Study
  Country: US (occurrence: US)
  Receive Date: 20170405
  Receipt Date: 20170405
  Transmission Date: 20170830
  Serious: Yes (Hospitalization)
  Sender: FDA-Public Use
  Company Number: US-GILEAD-2017-0263997

PATIENT
  Age: 74 Year
  Sex: Female

DRUGS (8)
  1. REMODULIN [Concomitant]
     Active Substance: TREPROSTINIL
  2. NEXIUM [Concomitant]
     Active Substance: ESOMEPRAZOLE MAGNESIUM
  3. AMBRISENTAN [Suspect]
     Active Substance: AMBRISENTAN
     Indication: PULMONARY HYPERTENSION
     Dosage: 10 MG, QD
     Route: 065
     Dates: start: 20141013
  4. CALCIUM [Concomitant]
     Active Substance: CALCIUM
  5. METOPROLOL TARTRATE. [Concomitant]
     Active Substance: METOPROLOL TARTRATE
  6. TRIUMEQ [Concomitant]
     Active Substance: ABACAVIR SULFATE\DOLUTEGRAVIR SODIUM\LAMIVUDINE
  7. APAP [Concomitant]
     Active Substance: ACETAMINOPHEN
  8. ASPIRIN                            /00002701/ [Concomitant]
     Active Substance: ASPIRIN

REACTIONS (3)
  - Blood creatinine increased [Unknown]
  - Heart rate increased [Unknown]
  - Unevaluable event [Unknown]
